FAERS Safety Report 4660965-X (Version None)
Quarter: 2005Q2

REPORT INFORMATION
  Report Type: 
  Country: None (occurrence: None)
  Receive Date: 20050511
  Receipt Date: 20050429
  Transmission Date: 20051028
  Serious: Yes (Hospitalization, Other)
  Sender: FDA-Public Use
  Company Number: KII-2005-0016457

PATIENT
  Age: 11 Year
  Sex: Male

DRUGS (2)
  1. MORPHINE SULFATE [Suspect]
     Dosage: ORAL
     Route: 048
  2. METHADONE HCL [Suspect]

REACTIONS (3)
  - COMA [None]
  - DYSPNOEA [None]
  - INTENTIONAL MISUSE [None]
